FAERS Safety Report 7437847-3 (Version None)
Quarter: 2011Q2

REPORT INFORMATION
  Report Type: 
  Country: None (occurrence: None)
  Receive Date: 20110426
  Receipt Date: 20110420
  Transmission Date: 20111010
  Serious: Yes (Other)
  Sender: FDA-Public Use
  Company Number: A0912985A

PATIENT
  Sex: Female

DRUGS (1)
  1. VALTREX [Suspect]
     Dosage: 500MG TWICE PER DAY
     Route: 065
     Dates: start: 20100101

REACTIONS (3)
  - COGNITIVE DISORDER [None]
  - CEREBROVASCULAR ACCIDENT [None]
  - SPEECH DISORDER [None]
